FAERS Safety Report 10475423 (Version 1)
Quarter: 2014Q3

REPORT INFORMATION
  Report Type: Spontaneous
  Country: US (occurrence: None)
  Receive Date: 20140924
  Receipt Date: 20140924
  Transmission Date: 20150326
  Serious: Yes (Hospitalization)
  Sender: FDA-Public Use
  Company Number: None

PATIENT
  Age: 52 Year

DRUGS (1)
  1. RISPERIDONE. [Suspect]
     Active Substance: RISPERIDONE
     Indication: ANXIETY
     Dosage: 1 PILLS TWICE DAILY TAKEN BY MOUTH
     Route: 048
     Dates: start: 20120801, end: 20120930

REACTIONS (5)
  - Restlessness [None]
  - Suicidal ideation [None]
  - Agitation [None]
  - Pain [None]
  - Confusional state [None]

NARRATIVE: CASE EVENT DATE: 20121001
